FAERS Safety Report 7302346-6 (Version None)
Quarter: 2011Q1

REPORT INFORMATION
  Report Type: 
  Country: None (occurrence: None)
  Receive Date: 20110218
  Receipt Date: 20110215
  Transmission Date: 20110831
  Serious: Yes (Hospitalization, Other)
  Sender: FDA-Public Use
  Company Number: US-PFIZER INC-2010173734

PATIENT
  Sex: Female
  Weight: 68.95 kg

DRUGS (8)
  1. ACTIVELLA [Concomitant]
  2. LAMICTAL [Concomitant]
  3. AMILORIDE HYDROCHLORIDE [Concomitant]
  4. PROPRANOLOL [Concomitant]
  5. EFFEXOR XR [Suspect]
     Indication: BIPOLAR DISORDER
     Dosage: 300 MG, 1X/DAY
     Dates: end: 20090901
  6. LITHIUM CARBONATE [Concomitant]
  7. SEROQUEL [Concomitant]
  8. EFFEXOR XR [Suspect]
     Dosage: 300 MG, 1X/DAY
     Route: 048
     Dates: start: 20090101

REACTIONS (10)
  - INSOMNIA [None]
  - PALPITATIONS [None]
  - BLOOD CHOLESTEROL INCREASED [None]
  - DIZZINESS [None]
  - TREMOR [None]
  - CRYING [None]
  - DRUG WITHDRAWAL SYNDROME [None]
  - HYPERHIDROSIS [None]
  - NAUSEA [None]
  - AFFECT LABILITY [None]
